FAERS Safety Report 20606477 (Version 1)
Quarter: 2022Q1

REPORT INFORMATION
  Report Type: Report from Study
  Country: US (occurrence: US)
  Receive Date: 20220317
  Receipt Date: 20220317
  Transmission Date: 20220424
  Serious: Yes (Hospitalization, Other)
  Sender: FDA-Public Use
  Company Number: US-JNJFOC-20220325171

PATIENT
  Age: 46 Year
  Sex: Male

DRUGS (2)
  1. AMIVANTAMAB [Suspect]
     Active Substance: AMIVANTAMAB
     Indication: Lung cancer metastatic
     Route: 065
     Dates: start: 20220218
  2. LAZERTINIB [Suspect]
     Active Substance: LAZERTINIB
     Indication: Lung cancer metastatic
     Route: 065
     Dates: start: 20220220

REACTIONS (3)
  - Syncope [Recovered/Resolved]
  - Muscular weakness [Not Recovered/Not Resolved]
  - Fall [Recovered/Resolved]

NARRATIVE: CASE EVENT DATE: 20220220
